FAERS Safety Report 17593239 (Version 2)
Quarter: 2021Q4

REPORT INFORMATION
  Report Type: Spontaneous
  Country: CZ (occurrence: CZ)
  Receive Date: 20200327
  Receipt Date: 20211210
  Transmission Date: 20220303
  Serious: Yes (Hospitalization, Other)
  Sender: FDA-Public Use
  Company Number: CZ-002147023-NVSC2020CZ061261

PATIENT
  Sex: Female

DRUGS (9)
  1. AZITHROMYCIN [Suspect]
     Active Substance: AZITHROMYCIN
     Indication: Limb discomfort
     Dosage: UNK
     Route: 048
     Dates: start: 201909
  2. AZITHROMYCIN [Suspect]
     Active Substance: AZITHROMYCIN
     Dosage: UNK
     Route: 048
  3. DOXYCYCLINE [Suspect]
     Active Substance: DOXYCYCLINE
     Indication: Pyoderma
     Dosage: UNK
     Route: 048
     Dates: start: 201908
  4. DOXYCYCLINE [Suspect]
     Active Substance: DOXYCYCLINE
     Dosage: UNK
     Route: 065
  5. DOXYCYCLINE [Suspect]
     Active Substance: DOXYCYCLINE
     Dosage: 200 MILLIGRAM, QD (100 MG BID)
     Route: 048
     Dates: start: 20191024, end: 20191103
  6. PENTASA [Concomitant]
     Active Substance: MESALAMINE
     Indication: Product used for unknown indication
     Dosage: 2 GRAM, QD (2G 0-0-2)
     Route: 065
  7. CLOBETASOL PROPIONATE [Concomitant]
     Active Substance: CLOBETASOL PROPIONATE
     Indication: Product used for unknown indication
     Dosage: UNK
  8. CLINDAMYCIN [Concomitant]
     Active Substance: CLINDAMYCIN
     Indication: Rash
     Dosage: UNK
     Route: 042
  9. Salofalk [Concomitant]
     Indication: Product used for unknown indication
     Dosage: 1 GRAM, QW
     Route: 065

REACTIONS (11)
  - Hyperkeratosis [Unknown]
  - Limb discomfort [Unknown]
  - Hyperplasia [Unknown]
  - Mass [Unknown]
  - Pyoderma [Unknown]
  - Skin cancer [Unknown]
  - Pyoderma gangrenosum [Unknown]
  - Drug ineffective [Unknown]
  - Vasculitis [Unknown]
  - Product use in unapproved indication [Unknown]
  - Erythema nodosum [Unknown]

NARRATIVE: CASE EVENT DATE: 20190901
